FAERS Safety Report 7647187-5 (Version None)
Quarter: 2011Q3

REPORT INFORMATION
  Report Type: 
  Country: None (occurrence: None)
  Receive Date: 20110801
  Receipt Date: 20110719
  Transmission Date: 20111222
  Serious: Yes (Hospitalization, Other)
  Sender: FDA-Public Use
  Company Number: US-ROCHE-754593

PATIENT
  Sex: Female
  Weight: 72.6 kg

DRUGS (2)
  1. ACCUTANE [Suspect]
     Indication: ACNE
     Route: 065
     Dates: start: 19991020, end: 20000101
  2. ACCUTANE [Suspect]
     Route: 065
     Dates: start: 20010101, end: 20020101

REACTIONS (9)
  - ABDOMINAL PAIN [None]
  - RECTAL HAEMORRHAGE [None]
  - ARTHRITIS [None]
  - COLITIS ULCERATIVE [None]
  - DEPRESSION [None]
  - INTESTINAL OBSTRUCTION [None]
  - POST-TRAUMATIC STRESS DISORDER [None]
  - ANAEMIA [None]
  - SUICIDAL IDEATION [None]
